FAERS Safety Report 10915861 (Version 2)
Quarter: 2015Q2

REPORT INFORMATION
  Report Type: Report from Study
  Country: PL (occurrence: PL)
  Receive Date: 20150316
  Receipt Date: 20150410
  Transmission Date: 20150821
  Serious: Yes (Death, Life-Threatening, Hospitalization, Disabling, Other)
  Sender: FDA-Public Use
  Company Number: PL-ASTRAZENECA-2015SE23731

PATIENT
  Age: 58 Year
  Sex: Male

DRUGS (4)
  1. TICAGRELOR [Suspect]
     Active Substance: TICAGRELOR
     Indication: THROMBOSIS PROPHYLAXIS
     Route: 048
     Dates: start: 20150220
  2. BIVALIRUDINE [Suspect]
     Active Substance: BIVALIRUDIN
     Indication: THROMBOSIS PROPHYLAXIS
     Dosage: PCI BOLUS - 0.75 MG/KG 1 TIMES PER 1 TOTAL FOR 2, 1.75 MG/KG/H
     Route: 042
     Dates: start: 20150220, end: 20150220
  3. ACETYLSALICYLIC ACID [Suspect]
     Active Substance: ASPIRIN
     Indication: THROMBOSIS PROPHYLAXIS
     Dosage: LOADING DOSE- 300 MG (NON-AZ PRODUCT)
     Route: 048
     Dates: start: 20150220
  4. STUDY PROCEDURE [Suspect]
     Active Substance: INVESTIGATIONAL PRODUCT
     Indication: THROMBOSIS PROPHYLAXIS
     Route: 065

REACTIONS (3)
  - Myocardial rupture [Fatal]
  - Cardiac arrest [Fatal]
  - Thrombosis in device [Fatal]

NARRATIVE: CASE EVENT DATE: 20150221
